FAERS Safety Report 6927999-3 (Version None)
Quarter: 2010Q3

REPORT INFORMATION
  Report Type: 
  Country: None (occurrence: None)
  Receive Date: 20100817
  Receipt Date: 20100809
  Transmission Date: 20110219
  Serious: Yes (Hospitalization)
  Sender: FDA-Public Use
  Company Number: CA-B.I. PHARMACEUTICALS,INC./RIDGEFIELD-2008-CN-00245CN

PATIENT
  Sex: Male

DRUGS (27)
  1. AGGRENOX [Suspect]
     Dosage: BID
     Route: 048
     Dates: start: 20051104, end: 20051202
  2. DULCOLAX [Suspect]
     Dosage: Q3D PRN
     Route: 054
  3. COLACE [Concomitant]
     Dosage: 200 MG
     Route: 048
  4. METOPROLOL TARTRATE [Concomitant]
     Dosage: 50 MG
     Route: 048
  5. IMOVANE [Concomitant]
     Dosage: 7.5 MG
  6. NORVASC [Concomitant]
     Dosage: 5 MG
     Route: 048
  7. CRESTOR [Concomitant]
     Dosage: 10 MG
     Route: 048
  8. SEREVENT [Concomitant]
     Dosage: 2 PUFFS Q12H
  9. ACETAMINOPHEN [Concomitant]
  10. FLONASE [Concomitant]
     Dosage: 2 PUFFS Q12H
  11. SENOKOT [Concomitant]
  12. MOTRIN [Concomitant]
     Dosage: 1-2 TABS QID PRN
  13. FLOVENT [Concomitant]
     Dosage: 1 SPRAY EACH NOSTRIL BID
  14. BONAMINE [Concomitant]
  15. PRILOSEC [Concomitant]
     Dosage: 40 MG
     Route: 048
  16. SODIUM PHOSPHATES [Concomitant]
  17. LACTULOSE [Concomitant]
     Dosage: 15 ML
  18. HYDROCHLOROTHIAZIDE [Concomitant]
     Dosage: 50 MG
     Route: 048
  19. HEPARIN [Concomitant]
     Dosage: Q12H
     Route: 058
  20. CLOPIDOGREL [Concomitant]
     Dosage: 75 MG
     Route: 048
  21. SENNOSIDES [Concomitant]
     Dosage: PRN
     Route: 048
  22. MECLIZINE [Concomitant]
     Dosage: 75 MG
     Route: 048
  23. ACETAMINOPHEN [Concomitant]
     Dosage: 1-2 Q4-6HR PRN
     Route: 048
  24. HYDROCORTISONE/CLOTRIMAZOLE [Concomitant]
     Dosage: BID PRN
  25. DESONIDE [Concomitant]
     Dosage: BID PRN
  26. BETAMETHASONE DIPROPIONATE [Concomitant]
  27. ALBUTEROL SULFATE AUTOHALER [Concomitant]
     Dosage: 1-2 PUFFS PRN

REACTIONS (6)
  - DECREASED APPETITE [None]
  - DIARRHOEA [None]
  - GENERAL PHYSICAL HEALTH DETERIORATION [None]
  - NAUSEA [None]
  - RENAL FAILURE ACUTE [None]
  - VOMITING [None]
